FAERS Safety Report 24585449 (Version 1)
Quarter: 2024Q4

REPORT INFORMATION
  Report Type: Spontaneous
  Country: US (occurrence: US)
  Receive Date: 20241106
  Receipt Date: 20241106
  Transmission Date: 20250114
  Serious: No
  Sender: MERCK
  Company Number: US-009507513-2410USA005977

PATIENT
  Sex: Female
  Weight: 72.1 kg

DRUGS (16)
  1. WINREVAIR [Suspect]
     Active Substance: SOTATERCEPT-CSRK
     Indication: Product used for unknown indication
     Dosage: UNK
  2. REMODULIN [Suspect]
     Active Substance: TREPROSTINIL
     Indication: Pulmonary arterial hypertension
     Dosage: 0.061 MICROGRAM PER KILOGRAM; STRENGTH: 2.5 MG/ML
     Route: 041
     Dates: start: 20230307
  3. FISH OIL [Concomitant]
     Active Substance: FISH OIL
  4. VITAMIN D3 [Concomitant]
     Active Substance: CHOLECALCIFEROL
  5. FIBER LAX [Concomitant]
     Active Substance: CALCIUM POLYCARBOPHIL
  6. ALLEGRA ALLERGY [Concomitant]
     Active Substance: FEXOFENADINE HYDROCHLORIDE
  7. IMODIUM [Concomitant]
     Active Substance: LOPERAMIDE HYDROCHLORIDE
  8. OPSUMIT [Concomitant]
     Active Substance: MACITENTAN
  9. MAGNESIUM [Concomitant]
     Active Substance: MAGNESIUM
  10. TYLENOL PM EXTRA STRENGTH [Concomitant]
     Active Substance: ACETAMINOPHEN\DIPHENHYDRAMINE HYDROCHLORIDE
  11. TADALAFIL [Concomitant]
     Active Substance: TADALAFIL
  12. PROBIOTIC 10 [BIFIDOBACTERIUM LACTIS;LACTIPLANTIBACILLUS PLANTARUM;LAC [Concomitant]
  13. POTASSIUM CHLORIDE [Concomitant]
     Active Substance: POTASSIUM CHLORIDE
  14. TEA TREE OIL [Concomitant]
     Active Substance: TEA TREE OIL
  15. MIRENA [Concomitant]
     Active Substance: LEVONORGESTREL
  16. COLLAGEN [Concomitant]
     Active Substance: COLLAGEN

REACTIONS (1)
  - Laboratory test abnormal [Unknown]
